FAERS Safety Report 4480059-6 (Version None)
Quarter: 2004Q4

REPORT INFORMATION
  Report Type: 
  Country: None (occurrence: None)
  Receive Date: 20041018
  Receipt Date: 20041005
  Transmission Date: 20050328
  Serious: Yes (Hospitalization, Disabling, Other)
  Sender: FDA-Public Use
  Company Number: 2003015276

PATIENT
  Sex: Female
  Weight: 117.4816 kg

DRUGS (32)
  1. GEODON [Suspect]
     Indication: ANXIETY
     Dosage: 2 IN 1 D, ORAL
     Route: 048
     Dates: start: 20010901, end: 20021001
  2. GEODON [Suspect]
     Indication: DEPRESSION
     Dosage: 2 IN 1 D, ORAL
     Route: 048
     Dates: start: 20010901, end: 20021001
  3. GEODON [Suspect]
     Indication: INSOMNIA
     Dosage: 2 IN 1 D, ORAL
     Route: 048
     Dates: start: 20010901, end: 20021001
  4. GEODON [Suspect]
     Indication: NIGHTMARE
     Dosage: 2 IN 1 D, ORAL
     Route: 048
     Dates: start: 20010901, end: 20021001
  5. GEODON [Suspect]
     Indication: POST-TRAUMATIC STRESS DISORDER
     Dosage: 2 IN 1 D, ORAL
     Route: 048
     Dates: start: 20010901, end: 20021001
  6. ERYTHROMYCIN [Suspect]
     Indication: KIDNEY INFECTION
  7. ERYTHROMYCIN [Suspect]
     Indication: TOOTH ABSCESS
  8. ROFECOXIB [Suspect]
     Indication: ILL-DEFINED DISORDER
     Dosage: 50 MG (2 IN 1 D), ORAL
     Route: 048
     Dates: end: 20020101
  9. OXYCET [Suspect]
     Indication: ARTHRALGIA
  10. TEMAZEPAM [Suspect]
     Indication: INSOMNIA
  11. CYCLOBENZAPRINE HYDROCHLORIDE [Suspect]
     Indication: MUSCLE RELAXANT THERAPY
  12. FLUOXETINE HYDROCHLORIDE [Concomitant]
  13. OMEPRAZOLE [Concomitant]
  14. DIAZEPAM [Concomitant]
  15. SUCRALFATE [Concomitant]
  16. METOCLOPRAMIDE [Concomitant]
  17. PHENTERMINE [Concomitant]
  18. ACETAMINOPHEN [Concomitant]
  19. ANTIHISTAMINES (ANTIHISTAMINES) [Concomitant]
  20. :BENZFETAMINE HYDROCHLORIDE (BENZFETAMINE [Concomitant]
  21. KETOROLAC TROMETHAMINE [Concomitant]
  22. CONJUGATED ESTROGENS [Concomitant]
  23. LOTREL [Concomitant]
  24. COTYLENOL (PARACETAMOL, CHLORPHENAMINE MALEATE, DEXTROMETHORPHAN HYDRO [Concomitant]
  25. MEDINITE (ETHANOL, PARACETAMOL, DEXTROMETHORPHAN HYDROBROMIDE, EPHEDRI [Concomitant]
  26. FUROSEMIDE [Concomitant]
  27. BUPROPION HYDROCHLORIDE [Concomitant]
  28. ZOLPIDEM TARTRATE [Concomitant]
  29. TOPIRAMATE [Concomitant]
  30. PROPACET 100 [Concomitant]
  31. OXYCODONE HCL [Concomitant]
  32. ALL OTHER THERAPEUTIC PRODUCTS [Concomitant]

REACTIONS (20)
  - ARTHROPATHY [None]
  - BLOOD POTASSIUM DECREASED [None]
  - BLOOD PRESSURE FLUCTUATION [None]
  - BLOOD PRESSURE IMMEASURABLE [None]
  - CEREBROVASCULAR ACCIDENT [None]
  - COMA [None]
  - DIZZINESS [None]
  - DRUG INTERACTION [None]
  - FEELING ABNORMAL [None]
  - HYPERTENSION [None]
  - KIDNEY INFECTION [None]
  - LABORATORY TEST ABNORMAL [None]
  - MIGRAINE [None]
  - NASOPHARYNGITIS [None]
  - PAIN [None]
  - TOOTH ABSCESS [None]
  - TREMOR [None]
  - ULCER [None]
  - UTERINE NEOPLASM [None]
  - WEIGHT FLUCTUATION [None]
